FAERS Safety Report 4914586-1 (Version None)
Quarter: 2006Q1

REPORT INFORMATION
  Report Type: 
  Country: None (occurrence: None)
  Receive Date: 20060216
  Receipt Date: 20050816
  Transmission Date: 20060701
  Serious: Yes (Death, Hospitalization, Other)
  Sender: FDA-Public Use
  Company Number: US-MERCK-0508USA03066

PATIENT
  Age: 71 Year
  Sex: Female

DRUGS (2)
  1. VIOXX [Suspect]
     Indication: ARTHRITIS
     Route: 048
     Dates: start: 19990101, end: 20030803
  2. VIOXX [Suspect]
     Route: 048
     Dates: start: 19990101, end: 20030803

REACTIONS (22)
  - ACUTE MYOCARDIAL INFARCTION [None]
  - ACUTE RESPIRATORY FAILURE [None]
  - CEREBROVASCULAR ACCIDENT [None]
  - CHEST DISCOMFORT [None]
  - CHRONIC OBSTRUCTIVE PULMONARY DISEASE [None]
  - COUGH [None]
  - DIVERTICULITIS [None]
  - DIZZINESS [None]
  - DYSPNOEA [None]
  - DYSPNOEA EXACERBATED [None]
  - ENDOCARDITIS [None]
  - GASTROINTESTINAL HAEMORRHAGE [None]
  - HYPOTENSION [None]
  - LOSS OF CONSCIOUSNESS [None]
  - NAUSEA [None]
  - PNEUMOTHORAX [None]
  - PRODUCTIVE COUGH [None]
  - RESPIRATORY DISORDER [None]
  - RESPIRATORY FAILURE [None]
  - SUBCUTANEOUS EMPHYSEMA [None]
  - VOMITING [None]
  - WHEEZING [None]
